FAERS Safety Report 10081847 (Version 1)
Quarter: 2014Q2

REPORT INFORMATION
  Report Type: Spontaneous
  Country: US (occurrence: None)
  Receive Date: 20140414
  Receipt Date: 20140414
  Transmission Date: 20141212
  Serious: Yes (Other)
  Sender: FDA-Public Use
  Company Number: SYM-2014-19362

PATIENT
  Age: 7 Year
  Sex: Female
  Weight: 22.85 kg

DRUGS (8)
  1. DIASTAT [Suspect]
     Indication: CONVULSION
     Route: 054
     Dates: start: 20140326, end: 20140326
  2. ZONEGRAN [Suspect]
     Indication: CONVULSION
  3. CLONAZEPAM [Concomitant]
  4. KEPPRA (LEVETIRACETAM) [Concomitant]
  5. ROBINUL (GLYCOPYRRONIUM BROMIDE) [Concomitant]
  6. LORATADINE [Concomitant]
  7. SALBUTAMOL [Concomitant]
  8. PULMICORT (BUDESONIDE) [Concomitant]

REACTIONS (1)
  - Drug ineffective [None]
